FAERS Safety Report 17856429 (Version 1)
Quarter: 2020Q2

REPORT INFORMATION
  Report Type: Spontaneous
  Country: SG (occurrence: SG)
  Receive Date: 20200603
  Receipt Date: 20200603
  Transmission Date: 20200714
  Serious: Yes (Hospitalization, Other)
  Sender: FDA-Public Use
  Company Number: SG-JNJFOC-20200534935

PATIENT
  Age: 55 Year
  Sex: Male

DRUGS (3)
  1. RIVAROXABAN [Suspect]
     Active Substance: RIVAROXABAN
     Indication: PRODUCT USED FOR UNKNOWN INDICATION
     Route: 048
  2. CLEXANE [Concomitant]
     Active Substance: ENOXAPARIN SODIUM
     Indication: POSTOPERATIVE CARE
  3. HEPARIN [Concomitant]
     Active Substance: HEPARIN SODIUM
     Indication: INTRAOPERATIVE CARE

REACTIONS (2)
  - Drug ineffective [Unknown]
  - Cerebrovascular accident [Unknown]
